FAERS Safety Report 21009126 (Version 10)
Quarter: 2022Q3

REPORT INFORMATION
  Report Type: Report from Study
  Country: CN (occurrence: None)
  Receive Date: 20220627
  Receipt Date: 20220915
  Transmission Date: 20221027
  Serious: Yes (Life-Threatening, Hospitalization)
  Sender: FDA-Public Use
  Company Number: CN-ROCHE-3067170

PATIENT
  Age: 65 Year
  Sex: Male
  Weight: 62.5 kg

DRUGS (74)
  1. ATEZOLIZUMAB [Suspect]
     Active Substance: ATEZOLIZUMAB
     Indication: Oesophageal squamous cell carcinoma metastatic
     Dosage: START DATE OF MOST RECENT DOSE OF STUDY DRUG PRIOR TO SAE AND AE 06-MAY-2022?START DATE OF MOST RECE
     Route: 041
     Dates: start: 20211125
  2. TIRAGOLUMAB [Suspect]
     Active Substance: TIRAGOLUMAB
     Indication: Oesophageal squamous cell carcinoma metastatic
     Dosage: START DATE OF MOST RECENT DOSE OF STUDY DRUG PRIOR TO SAE AND AE 06-MAY-2022?START DATE OF MOST RECE
     Route: 042
     Dates: start: 20211125
  3. PACLITAXEL [Suspect]
     Active Substance: PACLITAXEL
     Indication: Oesophageal squamous cell carcinoma metastatic
     Dosage: START DATE OF MOST RECENT DOSE OF STUDY DRUG PRIOR TO AE AND SAE VOMITING 09-MAR-2022?DOSE LAST STUD
     Route: 042
     Dates: start: 20211125
  4. CISPLATIN [Suspect]
     Active Substance: CISPLATIN
     Indication: Oesophageal squamous cell carcinoma metastatic
     Dosage: DOSE LAST STUDY DRUG ADMIN PRIOR AE AND SAE: 86.25 MG?START DATE OF MOST RECENT DOSE OF STUDY DRUG P
     Route: 042
     Dates: start: 20211125
  5. VALSARTAN [Concomitant]
     Active Substance: VALSARTAN
     Indication: Hypotension
     Route: 048
     Dates: start: 2017
  6. LANSOPRAZOLE [Concomitant]
     Active Substance: LANSOPRAZOLE
     Route: 048
     Dates: start: 20211220
  7. LANSOPRAZOLE [Concomitant]
     Active Substance: LANSOPRAZOLE
     Dosage: ENTERIC COATED
     Dates: start: 20220331, end: 20220422
  8. LANSOPRAZOLE [Concomitant]
     Active Substance: LANSOPRAZOLE
     Dates: start: 20220627, end: 20220627
  9. MOSAPRIDE CITRATE [Concomitant]
     Active Substance: MOSAPRIDE CITRATE
     Route: 048
     Dates: start: 20211220, end: 20220316
  10. ALLOPURINOL [Concomitant]
     Active Substance: ALLOPURINOL
     Indication: Hyperuricaemia
     Route: 048
     Dates: start: 20220128, end: 20220507
  11. SODIUM BICARBONATE [Concomitant]
     Active Substance: SODIUM BICARBONATE
     Dates: start: 20220308, end: 20220316
  12. SODIUM BICARBONATE [Concomitant]
     Active Substance: SODIUM BICARBONATE
     Dates: start: 20220405, end: 20220505
  13. ROXATIDINE ACETATE HYDROCHLORIDE [Concomitant]
     Active Substance: ROXATIDINE ACETATE HYDROCHLORIDE
     Dates: start: 20220309, end: 20220316
  14. DEXAMETHASONE SODIUM PHOSPHATE [Concomitant]
     Active Substance: DEXAMETHASONE SODIUM PHOSPHATE
     Route: 042
     Dates: start: 20220309, end: 20220309
  15. CIMETIDINE [Concomitant]
     Active Substance: CIMETIDINE
     Dates: start: 20220309, end: 20220309
  16. CIMETIDINE [Concomitant]
     Active Substance: CIMETIDINE
     Dates: start: 20220620, end: 20220620
  17. FOSAPREPITANT DIMEGLUMINE [Concomitant]
     Active Substance: FOSAPREPITANT DIMEGLUMINE
     Dates: start: 20220309, end: 20220309
  18. FUROSEMIDE [Concomitant]
     Active Substance: FUROSEMIDE
     Dates: start: 20220309, end: 20220309
  19. RECOMBINANT HUMAN GRANULOCYTE STIMULATING FACTOR (UNK INGREDIENTS) [Concomitant]
     Indication: White blood cell count increased
     Dates: start: 20220315, end: 20220316
  20. RECOMBINANT HUMAN GRANULOCYTE STIMULATING FACTOR (UNK INGREDIENTS) [Concomitant]
     Indication: Neutrophil count increased
  21. SODIUM CHLORIDE [Concomitant]
     Active Substance: SODIUM CHLORIDE
     Route: 042
     Dates: start: 20220308, end: 20220316
  22. SODIUM CHLORIDE [Concomitant]
     Active Substance: SODIUM CHLORIDE
     Route: 042
     Dates: start: 20220330, end: 20220330
  23. SODIUM CHLORIDE [Concomitant]
     Active Substance: SODIUM CHLORIDE
     Dates: start: 20220401, end: 20220412
  24. SODIUM CHLORIDE [Concomitant]
     Active Substance: SODIUM CHLORIDE
     Route: 042
     Dates: start: 20220330, end: 20220331
  25. SODIUM CHLORIDE [Concomitant]
     Active Substance: SODIUM CHLORIDE
     Route: 042
     Dates: start: 20220331, end: 20220331
  26. SODIUM CHLORIDE [Concomitant]
     Active Substance: SODIUM CHLORIDE
     Route: 042
     Dates: start: 20220614, end: 20220617
  27. TROPISETRON HYDROCHLORIDE [Concomitant]
     Active Substance: TROPISETRON HYDROCHLORIDE
     Dates: start: 20220309, end: 20220313
  28. TROPISETRON HYDROCHLORIDE [Concomitant]
     Active Substance: TROPISETRON HYDROCHLORIDE
     Route: 042
     Dates: start: 20220407, end: 20220411
  29. GLUTATHIONE [Concomitant]
     Active Substance: GLUTATHIONE
     Dates: start: 20220311, end: 20220316
  30. GLUTATHIONE [Concomitant]
     Active Substance: GLUTATHIONE
     Dates: start: 20220401, end: 20220412
  31. MAGNESIUM ISOGLYCYRRHIZINATE [Concomitant]
     Active Substance: MAGNESIUM ISOGLYCYRRHIZINATE
     Dates: start: 20220311, end: 20220314
  32. METOCLOPRAMIDE DIHYDROCHLORIDE [Concomitant]
     Route: 030
     Dates: start: 20220405, end: 20220412
  33. METOCLOPRAMIDE DIHYDROCHLORIDE [Concomitant]
     Route: 030
     Dates: start: 20220331, end: 20220331
  34. METOCLOPRAMIDE DIHYDROCHLORIDE [Concomitant]
     Route: 030
     Dates: start: 20220402, end: 20220402
  35. PANTOPRAZOLE SODIUM [Concomitant]
     Active Substance: PANTOPRAZOLE SODIUM
     Dates: start: 20220330, end: 20220412
  36. BUCINNAZINE HYDROCHLORIDE [Concomitant]
     Indication: Pain
     Dates: start: 20220331, end: 20220331
  37. BUCINNAZINE HYDROCHLORIDE [Concomitant]
     Dates: start: 20220302, end: 20220402
  38. FAMOTIDINE [Concomitant]
     Active Substance: FAMOTIDINE
     Dates: start: 20220331, end: 20220331
  39. FAMOTIDINE [Concomitant]
     Active Substance: FAMOTIDINE
     Dosage: 21-JUL-2022/21-JUL-2022
     Dates: start: 20220617, end: 20220627
  40. HYDROTALCITE [Concomitant]
     Active Substance: HYDROTALCITE
     Dates: start: 20220331, end: 20220412
  41. MORPHINE HYDROCHLORIDE [Concomitant]
     Active Substance: MORPHINE HYDROCHLORIDE
     Dates: start: 20220401, end: 20220401
  42. MORPHINE HYDROCHLORIDE [Concomitant]
     Active Substance: MORPHINE HYDROCHLORIDE
     Dates: start: 20220401, end: 20220412
  43. METHYLCOBALAMIN [Concomitant]
     Active Substance: METHYLCOBALAMIN
     Indication: Hypoaesthesia
     Dates: start: 20220408, end: 20220507
  44. ERYTHROPOIETIN [Concomitant]
     Active Substance: ERYTHROPOIETIN
     Indication: Anaemia
     Dates: start: 20220411, end: 20220411
  45. ERYTHROPOIETIN [Concomitant]
     Active Substance: ERYTHROPOIETIN
     Dates: start: 20220617, end: 20220617
  46. DIPHENHYDRAMINE HYDROCHLORIDE [Concomitant]
     Active Substance: DIPHENHYDRAMINE HYDROCHLORIDE
     Route: 042
     Dates: start: 20220407, end: 20220407
  47. DIPHENHYDRAMINE HYDROCHLORIDE [Concomitant]
     Active Substance: DIPHENHYDRAMINE HYDROCHLORIDE
     Route: 042
     Dates: start: 20220409, end: 20220409
  48. DIPHENHYDRAMINE HYDROCHLORIDE [Concomitant]
     Active Substance: DIPHENHYDRAMINE HYDROCHLORIDE
     Dates: start: 20220506, end: 20220506
  49. MEGESTROL ACETATE [Concomitant]
     Active Substance: MEGESTROL ACETATE
     Dates: start: 20220408, end: 20220412
  50. MEGESTROL ACETATE [Concomitant]
     Active Substance: MEGESTROL ACETATE
     Dates: start: 20220614, end: 20220627
  51. LACTULOSE [Concomitant]
     Active Substance: LACTULOSE
     Indication: Constipation
     Route: 048
     Dates: start: 20220411, end: 20220420
  52. SCOPOLAMINE HYDROCHLORIDE [Concomitant]
     Active Substance: SCOPOLAMINE HYDROCHLORIDE
     Indication: Gastrointestinal pain
     Route: 042
     Dates: start: 20220331, end: 20220331
  53. ZINC SULFATE AND ALLANTOIN [Concomitant]
     Indication: Conjunctivitis
     Dates: start: 20220331, end: 202204
  54. DOMPERIDONE [Concomitant]
     Active Substance: DOMPERIDONE
     Indication: Abdominal distension
     Dates: start: 20220316, end: 20220329
  55. FRUCTOSE\GLYCERIN\SODIUM CHLORIDE [Concomitant]
     Active Substance: FRUCTOSE\GLYCERIN\SODIUM CHLORIDE
     Indication: Dehydration
     Route: 042
     Dates: start: 20220402, end: 20220411
  56. TORSEMIDE [Concomitant]
     Active Substance: TORSEMIDE
     Route: 065
     Dates: start: 20220316, end: 20220316
  57. TORSEMIDE [Concomitant]
     Active Substance: TORSEMIDE
     Route: 065
     Dates: start: 20220308, end: 20220308
  58. TORSEMIDE [Concomitant]
     Active Substance: TORSEMIDE
     Route: 065
     Dates: start: 20220313, end: 20220313
  59. TORSEMIDE [Concomitant]
     Active Substance: TORSEMIDE
     Route: 065
     Dates: start: 20220311, end: 20220311
  60. SODIUM CHLORIDE [Concomitant]
     Active Substance: SODIUM CHLORIDE
     Route: 041
     Dates: start: 20220614, end: 20220617
  61. PREDNISOLONE ACETATE [Concomitant]
     Active Substance: PREDNISOLONE ACETATE
     Route: 048
     Dates: start: 20220617, end: 20220620
  62. PREDNISOLONE ACETATE [Concomitant]
     Active Substance: PREDNISOLONE ACETATE
     Route: 048
     Dates: start: 20220627
  63. METHYLPREDNISOLONE SODIUM SUCCINATE [Concomitant]
     Active Substance: METHYLPREDNISOLONE SODIUM SUCCINATE
     Route: 041
     Dates: start: 20220620, end: 20220627
  64. PROMETHAZINE HYDROCHLORIDE [Concomitant]
     Active Substance: PROMETHAZINE HYDROCHLORIDE
     Dates: start: 20220620, end: 20220620
  65. L-GLUTAMINE AND SODIUM GUALENATE [Concomitant]
     Dates: start: 20220627, end: 20220627
  66. ESOMEPRAZOLE SODIUM [Concomitant]
     Active Substance: ESOMEPRAZOLE SODIUM
     Dates: start: 20220614, end: 20220627
  67. DEXTROSE\SODIUM CHLORIDE [Concomitant]
     Active Substance: DEXTROSE\SODIUM CHLORIDE
     Route: 042
     Dates: start: 20220614, end: 20220624
  68. POTASSIUM CHLORIDE [Concomitant]
     Active Substance: POTASSIUM CHLORIDE
     Dates: start: 20220614, end: 20220624
  69. COMPOUND AMINO ACID INJECTION (18AA-V-SF) [Concomitant]
     Dates: start: 20220617, end: 20220627
  70. HEPARIN SODIUM [Concomitant]
     Active Substance: HEPARIN SODIUM
     Dates: start: 20220623, end: 20220623
  71. HEPARIN SODIUM [Concomitant]
     Active Substance: HEPARIN SODIUM
     Dates: start: 20220617, end: 20220627
  72. HEPARIN SODIUM [Concomitant]
     Active Substance: HEPARIN SODIUM
     Dates: start: 20220721, end: 20220721
  73. IBUPROFEN SUSTAINED RELEASE [Concomitant]
     Dates: start: 20220322, end: 20220329
  74. CONCENTRATE OF TRACE ELEMENTS [Concomitant]
     Indication: Malnutrition
     Dates: start: 20220721, end: 20220721

REACTIONS (3)
  - Hyponatraemia [Recovered/Resolved]
  - Vomiting [Recovered/Resolved]
  - Adrenal insufficiency [Recovering/Resolving]

NARRATIVE: CASE EVENT DATE: 20220331
